FAERS Safety Report 5030526-1 (Version None)
Quarter: 2006Q2

REPORT INFORMATION
  Report Type: 
  Country: None (occurrence: None)
  Receive Date: 20060615
  Receipt Date: 20060609
  Transmission Date: 20061013
  Serious: Yes (Other)
  Sender: FDA-Public Use
  Company Number: S06-USA-02236-01

PATIENT
  Age: 50 Year
  Sex: Female

DRUGS (3)
  1. CAMPRAL [Suspect]
     Indication: ALCOHOLISM
     Dates: start: 20060101
  2. LEXAPRO [Suspect]
     Indication: DEPRESSION
  3. KLONOPIN [Concomitant]

REACTIONS (1)
  - CARDIOMEGALY [None]
